FAERS Safety Report 9200381 (Version 1)
Quarter: 2013Q1

REPORT INFORMATION
  Report Type: Spontaneous
  Country: US (occurrence: US)
  Receive Date: 20130329
  Receipt Date: 20130329
  Transmission Date: 20140127
  Serious: Yes (Hospitalization)
  Sender: FDA-Public Use
  Company Number: US-B.I. PHARMACEUTICALS,INC./RIDGEFIELD-2013-BI-08049BP

PATIENT
  Age: 94 Year
  Sex: Male

DRUGS (2)
  1. PRADAXA [Suspect]
     Indication: ATRIAL FIBRILLATION
     Dates: start: 201303, end: 201303
  2. NOT FURTHER SPECIFIED MEDICATION [Concomitant]

REACTIONS (1)
  - Urinary bladder haemorrhage [Recovered/Resolved]
